FAERS Safety Report 6589452-9 (Version None)
Quarter: 2010Q1

REPORT INFORMATION
  Report Type: 
  Country: None (occurrence: None)
  Receive Date: 20100218
  Receipt Date: 20100209
  Transmission Date: 20100710
  Serious: Yes (Other)
  Sender: FDA-Public Use
  Company Number: UG-GILEAD-2009-0026090

PATIENT
  Sex: Female

DRUGS (2)
  1. VIREAD [Suspect]
     Route: 048
     Dates: start: 20040310
  2. LAMIVUDINE + ZIDOVUDINE [Suspect]
     Route: 048
     Dates: start: 20040310

REACTIONS (1)
  - STILLBIRTH [None]
